FAERS Safety Report 10108892 (Version 1)
Quarter: 2014Q2

REPORT INFORMATION
  Report Type: Spontaneous
  Country: US (occurrence: None)
  Receive Date: 20140423
  Receipt Date: 20140423
  Transmission Date: 20141212
  Serious: Yes (Hospitalization)
  Sender: FDA-Public Use
  Company Number: SYM-2014-18708

PATIENT
  Age: 52 Year
  Sex: Male

DRUGS (4)
  1. XENAZINE (TETRABENAZINE) (25 MILLIGRAM, TABLETS) (TETRABENAZINE) [Suspect]
     Indication: HUNTINGTON^S DISEASE
     Route: 048
  2. RISPERIDAL [Concomitant]
  3. ZOLOFT (SERTRALINE HYDROCHLORIDE)(50 MILLIGRAM) (SERTRALINE HYDROCHLORIDE) [Concomitant]
  4. CLONAZEPAM (CLONAZEPAM) (CLONAZEPAM) [Concomitant]

REACTIONS (2)
  - Aggression [None]
  - Aggression [None]
